FAERS Safety Report 22316495 (Version 1)
Quarter: 2023Q2

REPORT INFORMATION
  Report Type: Spontaneous
  Country: US (occurrence: US)
  Receive Date: 20230513
  Receipt Date: 20230513
  Transmission Date: 20230722
  Serious: No
  Sender: FDA-Public Use
  Company Number: US-002147023-NVSC2023US109128

PATIENT
  Sex: Female
  Weight: 90.71 kg

DRUGS (2)
  1. LETROZOLE [Suspect]
     Active Substance: LETROZOLE
     Indication: Breast cancer recurrent
     Dosage: UNK, QD
     Route: 065
     Dates: start: 202203
  2. IBRANCE [Suspect]
     Active Substance: PALBOCICLIB
     Indication: Breast cancer recurrent
     Dosage: 100 MG (ON 21 DAYS OFF 7 DAYS)
     Route: 065
     Dates: start: 202207

REACTIONS (1)
  - Influenza [Unknown]
